FAERS Safety Report 15574905 (Version 1)
Quarter: 2018Q4

REPORT INFORMATION
  Report Type: Spontaneous
  Country: US (occurrence: US)
  Receive Date: 20181101
  Receipt Date: 20181101
  Transmission Date: 20190205
  Serious: Yes (Other)
  Sender: FDA-Public Use
  Company Number: US-LPDUSPRD-20182016

PATIENT
  Age: 52 Year
  Sex: Female

DRUGS (4)
  1. CYCLOSPORINE INJECTION, USP (866-10) [Suspect]
     Active Substance: CYCLOSPORINE
     Dosage: UNKNOWN
     Route: 065
  2. GANCICLOVIR INJECTION (0517-1945-01) [Concomitant]
     Active Substance: GANCICLOVIR
     Dosage: UNKNOWN
     Route: 065
  3. MYCOPHENOLATE [Concomitant]
     Active Substance: MYCOPHENOLIC ACID
     Dosage: UNKNOWN
     Route: 065
  4. CYCLOPHOSPHAMIDE. [Concomitant]
     Active Substance: CYCLOPHOSPHAMIDE
     Dosage: UNKNOWN
     Route: 065

REACTIONS (2)
  - Toxic leukoencephalopathy [Unknown]
  - Posterior reversible encephalopathy syndrome [Unknown]
